FAERS Safety Report 9858940 (Version 1)
Quarter: 2014Q1

REPORT INFORMATION
  Report Type: Spontaneous
  Country: US (occurrence: US)
  Receive Date: 20140131
  Receipt Date: 20140131
  Transmission Date: 20141002
  Serious: No
  Sender: FDA-Public Use
  Company Number: US-BAYER-2014-015067

PATIENT
  Age: 61 Year
  Sex: Female

DRUGS (6)
  1. AVELOX [Suspect]
     Indication: SINUSITIS
     Dosage: 400 MG, QD
     Route: 048
  2. NEXIUM [Concomitant]
  3. ESTRADIOL [Concomitant]
  4. LOVAZA [Concomitant]
  5. CALCIUM [CALCIUM] [Concomitant]
  6. BABY ASPIRIN [Concomitant]

REACTIONS (4)
  - Nausea [Recovering/Resolving]
  - Tremor [Recovering/Resolving]
  - Heart rate irregular [Recovering/Resolving]
  - Headache [Recovering/Resolving]
